FAERS Safety Report 5312656-X (Version None)
Quarter: 2007Q2

REPORT INFORMATION
  Report Type: 
  Country: None (occurrence: None)
  Receive Date: 20070430
  Receipt Date: 20070205
  Transmission Date: 20071010
  Serious: No
  Sender: FDA-Public Use
  Company Number: 2007UW02418

PATIENT
  Age: 71 Year
  Sex: Female
  Weight: 58.1 kg

DRUGS (5)
  1. NEXIUM [Suspect]
     Indication: GASTROOESOPHAGEAL REFLUX DISEASE
     Route: 048
  2. DICLOFEN [Concomitant]
  3. SODIUM [Concomitant]
  4. VITAMIN E [Concomitant]
  5. GLUCOSAMINE [Concomitant]

REACTIONS (1)
  - RESORPTION BONE INCREASED [None]
